FAERS Safety Report 11158768 (Version 1)
Quarter: 2015Q2

REPORT INFORMATION
  Report Type: Spontaneous
  Country: US (occurrence: None)
  Receive Date: 20150602
  Receipt Date: 20150602
  Transmission Date: 20150821
  Serious: Yes (Other)
  Sender: FDA-Public Use
  Company Number: None

PATIENT
  Age: 55 Year
  Sex: Male
  Weight: 80.74 kg

DRUGS (1)
  1. EMEND [Suspect]
     Active Substance: APREPITANT
     Route: 042

REACTIONS (6)
  - Oxygen saturation decreased [None]
  - Dyspnoea [None]
  - Unevaluable event [None]
  - Hyperhidrosis [None]
  - Dizziness [None]
  - Cyanosis [None]

NARRATIVE: CASE EVENT DATE: 20150527
